FAERS Safety Report 8821856 (Version 1)
Quarter: 2012Q4

REPORT INFORMATION
  Report Type: 
  Country: US (occurrence: US)
  Receive Date: 20121002
  Receipt Date: 20121002
  Transmission Date: 20130627
  Serious: Yes (Other)
  Sender: FDA-Public Use
  Company Number: US-MYLANLABS-2012S1019670

PATIENT
  Age: 66 Year
  Sex: Female

DRUGS (1)
  1. LITHIUM [Suspect]
     Indication: SCHIZOPHRENIA
     Route: 065

REACTIONS (2)
  - Nephropathy [Unknown]
  - Renal cyst [Unknown]
